FAERS Safety Report 5704877-9 (Version None)
Quarter: 2008Q2

REPORT INFORMATION
  Report Type: 
  Country: None (occurrence: None)
  Receive Date: 20080414
  Receipt Date: 20080410
  Transmission Date: 20081010
  Serious: Yes (Hospitalization)
  Sender: FDA-Public Use
  Company Number: JP-BOEHRINGER INGELHEIM GMBH, GERMANY-2008-BP-02675NB

PATIENT
  Sex: Female

DRUGS (2)
  1. BI-SIFROL TABLETS [Suspect]
     Indication: PARKINSON'S DISEASE
     Route: 048
     Dates: start: 20050301, end: 20050414
  2. MADOPAR (LEVODOPA_BENSERAZIDE HYDROCHLORIDE)) [Concomitant]
     Indication: PARKINSON'S DISEASE
     Route: 048
     Dates: start: 20040720

REACTIONS (4)
  - HALLUCINATION [None]
  - HEADACHE [None]
  - SOMNOLENCE [None]
  - TREMOR [None]
